FAERS Safety Report 7724383-X (Version None)
Quarter: 2011Q3

REPORT INFORMATION
  Report Type: 
  Country: None (occurrence: None)
  Receive Date: 20110829
  Receipt Date: 20110815
  Transmission Date: 20111222
  Serious: Yes (Life-Threatening, Hospitalization)
  Sender: FDA-Public Use
  Company Number: 1005665

PATIENT
  Age: 64 Year
  Sex: Female
  Weight: 51.36 kg

DRUGS (1)
  1. FENTANYL CITRATE [Suspect]
     Indication: PROCEDURAL PAIN
     Dosage: 100 MCG, ONCE, INTRAVENOUS BOLUS
     Route: 040
     Dates: start: 20110725, end: 20110725

REACTIONS (2)
  - MIOSIS [None]
  - DYSPNOEA [None]
